FAERS Safety Report 7412148-8 (Version None)
Quarter: 2011Q2

REPORT INFORMATION
  Report Type: 
  Country: None (occurrence: None)
  Receive Date: 20110408
  Receipt Date: 20110408
  Transmission Date: 20111010
  Serious: Yes (Life-Threatening, Hospitalization, Disabling, Other)
  Sender: FDA-Public Use
  Company Number: None

PATIENT
  Sex: Female
  Weight: 77.1115 kg

DRUGS (3)
  1. CYMBALTA [Suspect]
     Indication: ANXIETY
     Dosage: 30MG DAILY PO
     Route: 048
     Dates: start: 20110216, end: 20110301
  2. CYMBALTA [Suspect]
     Indication: CHEST PAIN
     Dosage: 30MG DAILY PO
     Route: 048
     Dates: start: 20110216, end: 20110301
  3. CYMBALTA [Suspect]
     Indication: CHEST DISCOMFORT
     Dosage: 30MG DAILY PO
     Route: 048
     Dates: start: 20110216, end: 20110301

REACTIONS (3)
  - PSYCHOTIC BEHAVIOUR [None]
  - PARANOIA [None]
  - DELUSION [None]
